FAERS Safety Report 4773134-X (Version None)
Quarter: 2005Q3

REPORT INFORMATION
  Report Type: 
  Country: None (occurrence: None)
  Receive Date: 20050915
  Receipt Date: 20050915
  Transmission Date: 20060218
  Serious: Yes (Death)
  Sender: FDA-Public Use
  Company Number: None

PATIENT
  Age: 62 Year
  Sex: Female
  Weight: 42.6381 kg

DRUGS (1)
  1. NEULASTA [Suspect]
     Indication: WHITE BLOOD CELL COUNT DECREASED
     Dates: start: 20050823, end: 20050823

REACTIONS (3)
  - ACUTE RESPIRATORY FAILURE [None]
  - CYANOSIS [None]
  - DYSPNOEA [None]
